FAERS Safety Report 10625127 (Version 1)
Quarter: 2014Q4

REPORT INFORMATION
  Report Type: Report from Study
  Country: CA (occurrence: None)
  Receive Date: 20141201
  Receipt Date: 20141201
  Transmission Date: 20150529
  Serious: Yes (Death, Life-Threatening, Hospitalization)
  Sender: FDA-Public Use
  Company Number: AG-2014-004632

PATIENT
  Age: 67 Year
  Sex: Female
  Weight: 72.5 kg

DRUGS (16)
  1. PROCTOSEDYL OINTMENT [Concomitant]
  2. NARCAN [Concomitant]
     Active Substance: NALOXONE HYDROCHLORIDE
  3. COLACE [Concomitant]
     Active Substance: DOCUSATE SODIUM
  4. TUCKS PADS [Concomitant]
  5. VITAMIN K [Concomitant]
     Active Substance: PHYTONADIONE
  6. NYSTATIN SUSPENSION [Concomitant]
     Active Substance: NYSTATIN
  7. NORMAL SALINE [Concomitant]
     Active Substance: SODIUM CHLORIDE
  8. CHLORAMBUCIL TABLET [Suspect]
     Active Substance: CHLORAMBUCIL
     Indication: CHRONIC LYMPHOCYTIC LEUKAEMIA
     Route: 048
     Dates: end: 20140724
  9. OBINUTUZUMAB (INFUSION) [Suspect]
     Active Substance: OBINUTUZUMAB
     Indication: CHRONIC LYMPHOCYTIC LEUKAEMIA
     Route: 041
     Dates: start: 20140704, end: 20140704
  10. MAXERAN [Concomitant]
     Active Substance: METOCLOPRAMIDE HYDROCHLORIDE
  11. DEMEROL [Concomitant]
     Active Substance: MEPERIDINE HYDROCHLORIDE
  12. TYLENOL [Concomitant]
     Active Substance: ACETAMINOPHEN
  13. G-CSF (UNK INGREDIENTS) (GRANULOCYTE COLONY STIMULATING FACTOR NOS) [Concomitant]
  14. HYZAAR [Concomitant]
     Active Substance: HYDROCHLOROTHIAZIDE\LOSARTAN POTASSIUM
  15. ANUSOL HC [Concomitant]
     Active Substance: HYDROCORTISONE
  16. VERSED [Concomitant]
     Active Substance: MIDAZOLAM HYDROCHLORIDE

REACTIONS (6)
  - Anxiety [None]
  - Infection [None]
  - Respiratory failure [None]
  - Neutropenia [None]
  - Pneumonia [None]
  - Acute respiratory distress syndrome [None]

NARRATIVE: CASE EVENT DATE: 20140712
